FAERS Safety Report 6894914-0 (Version None)
Quarter: 2010Q3

REPORT INFORMATION
  Report Type: 
  Country: None (occurrence: None)
  Receive Date: 20100730
  Receipt Date: 20100730
  Transmission Date: 20110219
  Serious: Yes (Hospitalization, Disabling)
  Sender: FDA-Public Use
  Company Number: None

PATIENT
  Sex: Female

DRUGS (4)
  1. EVISTA [Suspect]
     Indication: NEOPLASM RECURRENCE
     Dosage: 60 MG 1 TIME DAILY
     Dates: start: 19960101
  2. EVISTA [Suspect]
     Indication: OSTEOPOROSIS PROPHYLAXIS
     Dosage: 60 MG 1 TIME DAILY
     Dates: start: 19960101
  3. EVISTA [Suspect]
     Indication: NEOPLASM RECURRENCE
     Dosage: 60 MG 1 TIME DAILY
     Dates: start: 20060101
  4. EVISTA [Suspect]
     Indication: OSTEOPOROSIS PROPHYLAXIS
     Dosage: 60 MG 1 TIME DAILY
     Dates: start: 20060101

REACTIONS (2)
  - PULMONARY EMBOLISM [None]
  - SYNCOPE [None]
